FAERS Safety Report 22136625 (Version 1)
Quarter: 2023Q1

REPORT INFORMATION
  Report Type: Report from Study
  Country: US (occurrence: US)
  Receive Date: 20230324
  Receipt Date: 20230324
  Transmission Date: 20230418
  Serious: Yes (Hospitalization, Other)
  Sender: FDA-Public Use
  Company Number: US-G1 THERAPEUTICS-2023G1US0000062

PATIENT

DRUGS (1)
  1. COSELA [Suspect]
     Active Substance: TRILACICLIB DIHYDROCHLORIDE
     Indication: Product used for unknown indication
     Dosage: UNK
     Route: 065

REACTIONS (25)
  - Myelosuppression [Unknown]
  - Sepsis [Unknown]
  - Pneumonia [Unknown]
  - Red blood cell count decreased [Unknown]
  - Platelet count decreased [Unknown]
  - Haemorrhage [Unknown]
  - Anaemia [Unknown]
  - Psychiatric symptom [Unknown]
  - Somnolence [Unknown]
  - Loss of personal independence in daily activities [Unknown]
  - Asthenia [Unknown]
  - Nausea [Unknown]
  - Pain [Unknown]
  - Depressed mood [Unknown]
  - Nervousness [Unknown]
  - Fear of death [Unknown]
  - Anxiety [Unknown]
  - Dyspnoea [Unknown]
  - Weight decreased [Unknown]
  - Cough [Unknown]
  - Alopecia [Unknown]
  - Chest discomfort [Unknown]
  - Performance status decreased [Unknown]
  - Fatigue [Unknown]
  - Malaise [Unknown]
